FAERS Safety Report 10022992 (Version 1)
Quarter: 2014Q1

REPORT INFORMATION
  Report Type: Spontaneous
  Country: US (occurrence: US)
  Receive Date: 20140319
  Receipt Date: 20140319
  Transmission Date: 20141002
  Serious: No
  Sender: FDA-Public Use
  Company Number: US-SA-2014SA005629

PATIENT
  Age: 54 Year
  Sex: Female

DRUGS (1)
  1. LEUKINE [Suspect]
     Indication: MALIGNANT MELANOMA
     Route: 065
     Dates: start: 20140103

REACTIONS (1)
  - Epistaxis [Not Recovered/Not Resolved]
